FAERS Safety Report 10061038 (Version 3)
Quarter: 2014Q2

REPORT INFORMATION
  Report Type: Report from Study
  Country: FI (occurrence: FI)
  Receive Date: 20140405
  Receipt Date: 20140506
  Transmission Date: 20141212
  Serious: Yes (Other)
  Sender: FDA-Public Use
  Company Number: FI-AMGEN INC.-FINNI2014023059

PATIENT
  Age: 69 Year
  Sex: 0

DRUGS (4)
  1. XGEVA [Suspect]
     Indication: OSTEOPOROSIS
     Dosage: 120 MG, Q3WK
     Route: 058
     Dates: start: 20120425, end: 20140402
  2. DENOSUMAB [Suspect]
     Indication: PRODUCT USED FOR UNKNOWN INDICATION
     Dosage: UNK
     Route: 065
  3. CALCICHEW D3 [Concomitant]
     Dosage: UNK UNK, BID
  4. FOSAMAX [Concomitant]
     Dosage: 70 MG, QWK

REACTIONS (1)
  - Osteonecrosis of jaw [Not Recovered/Not Resolved]
